FAERS Safety Report 5759251-6 (Version None)
Quarter: 2008Q2

REPORT INFORMATION
  Report Type: 
  Country: None (occurrence: None)
  Receive Date: 20080604
  Receipt Date: 20080523
  Transmission Date: 20081010
  Serious: Yes (Hospitalization, Other)
  Sender: FDA-Public Use
  Company Number: DK-PFIZER INC-2008045986

PATIENT
  Age: 51 Year
  Sex: Female

DRUGS (5)
  1. SERTRALINE [Suspect]
  2. IBUROFEN [Suspect]
     Dosage: TEXT:500 MG
  3. INTERFERON BETA [Suspect]
     Indication: RELAPSING-REMITTING MULTIPLE SCLEROSIS
     Dosage: TEXT:30 MCG
  4. SIMVASTATIN [Suspect]
     Indication: LIPIDS INCREASED
  5. LORAZEPAM [Suspect]

REACTIONS (4)
  - ACUTE HEPATIC FAILURE [None]
  - AUTOIMMUNE HEPATITIS [None]
  - COMA HEPATIC [None]
  - HEPATIC ENCEPHALOPATHY [None]
